FAERS Safety Report 23751137 (Version 5)
Quarter: 2024Q3

REPORT INFORMATION
  Report Type: Spontaneous
  Country: CA (occurrence: CA)
  Receive Date: 20240417
  Receipt Date: 20240705
  Transmission Date: 20241017
  Serious: Yes (Other)
  Sender: CELLTRION
  Company Number: CA-CELLTRION INC.-2024CA009021

PATIENT

DRUGS (21)
  1. INFLECTRA [Suspect]
     Active Substance: INFLIXIMAB-DYYB
     Indication: Ankylosing spondylitis
     Dosage: 10 MG/KG, INDUCTION AT WEEK 0, 2 AND 6, THEN EVERY 8 WEEKS
     Route: 042
     Dates: start: 20210812, end: 20210812
  2. INFLECTRA [Suspect]
     Active Substance: INFLIXIMAB-DYYB
     Indication: Crohn^s disease
     Dosage: 10 MG/KG, EVERY 8 WEEKS, RE-INDUCTION
     Route: 042
     Dates: start: 20220527, end: 20220725
  3. INFLECTRA [Suspect]
     Active Substance: INFLIXIMAB-DYYB
     Dosage: 10 MG/KG, EVERY 4 WEEKS (SINGLE DOSE AFTER 4 WEEKS)
     Route: 042
     Dates: start: 20220917, end: 20220917
  4. INFLECTRA [Suspect]
     Active Substance: INFLIXIMAB-DYYB
     Dosage: 5 MG/KG, EVERY 6 WEEKS
     Route: 042
     Dates: start: 20221031, end: 20221213
  5. INFLECTRA [Suspect]
     Active Substance: INFLIXIMAB-DYYB
     Dosage: 5 MG/KG, EVERY 7 WEEKS
     Route: 042
     Dates: start: 20230124
  6. INFLECTRA [Suspect]
     Active Substance: INFLIXIMAB-DYYB
     Dosage: 5 MG/KG, EVERY 7 WEEKS
     Route: 042
     Dates: start: 20240307
  7. INFLECTRA [Suspect]
     Active Substance: INFLIXIMAB-DYYB
     Dosage: 360 MG,AFTER 16 WEEKS AND 1 DAY (5 MG/KG, EVERY 7 WEEKS)
     Route: 042
     Dates: start: 20240628
  8. ASPIRIN [Concomitant]
     Active Substance: ASPIRIN
     Dosage: UNK
  9. DUTASTERIDE [Concomitant]
     Active Substance: DUTASTERIDE
     Dosage: UNK
  10. IRBESARTAN [Concomitant]
     Active Substance: IRBESARTAN
     Dosage: UNK
  11. ISONIAZID [Concomitant]
     Active Substance: ISONIAZID
     Dosage: UNK
  12. LAMOTRIGINE [Concomitant]
     Active Substance: LAMOTRIGINE
     Dosage: UNK
  13. METOPROLOL [Concomitant]
     Active Substance: METOPROLOL
     Dosage: UNK
  14. MORPHINE [Concomitant]
     Active Substance: MORPHINE
     Dosage: 1 DF, DOSAGE NOT AVAILABLE
     Route: 065
  15. ISOSORBIDE DINITRATE [Concomitant]
     Active Substance: ISOSORBIDE DINITRATE
     Dosage: UNK
  16. OCUNOX [OXYBUPROCAINE HYDROCHLORIDE] [Concomitant]
     Dosage: UNK
  17. PANTOPRAZOLE [Concomitant]
     Active Substance: PANTOPRAZOLE
     Dosage: UNK
  18. ROSUVASTATIN [Concomitant]
     Active Substance: ROSUVASTATIN
     Dosage: UNK
  19. SYSTANE ULTRA [Concomitant]
     Active Substance: POLYETHYLENE GLYCOL 400\PROPYLENE GLYCOL
     Dosage: UNK
  20. TAMSULOSIN [Concomitant]
     Active Substance: TAMSULOSIN
     Dosage: UNK
  21. CHOLECALCIFEROL [Concomitant]
     Active Substance: CHOLECALCIFEROL
     Dosage: UNK

REACTIONS (2)
  - Cataract [Recovering/Resolving]
  - Labyrinthitis [Recovered/Resolved]

NARRATIVE: CASE EVENT DATE: 20240101
